FAERS Safety Report 22998411 (Version 2)
Quarter: 2023Q4

REPORT INFORMATION
  Report Type: Spontaneous
  Country: JP (occurrence: JP)
  Receive Date: 20230928
  Receipt Date: 20231030
  Transmission Date: 20240109
  Serious: Yes (Other)
  Sender: FDA-Public Use
  Company Number: JP-BEH-2023163587

PATIENT
  Age: 66 Year
  Sex: Male

DRUGS (8)
  1. PRIVIGEN [Suspect]
     Active Substance: HUMAN IMMUNOGLOBULIN G
     Indication: Hypogammaglobulinaemia
     Route: 065
  2. MAGNESIUM CITRATE MALATE [Concomitant]
     Indication: Constipation
  3. MAGNESIUM CITRATE MALATE [Concomitant]
     Indication: Constipation
  4. LACTULOSE [Concomitant]
     Active Substance: LACTULOSE
     Indication: Constipation
  5. LACTULOSE [Concomitant]
     Active Substance: LACTULOSE
     Indication: Constipation
  6. PHENTOLAMINE HCL [Concomitant]
     Dosage: 1 MILLILITER, QH
     Route: 042
  7. PHENTOLAMINE HCL [Concomitant]
     Dosage: 2 MILLILITER, QH
     Route: 042
  8. PHENTOLAMINE HCL [Concomitant]
     Dosage: UNK [INCREASED FURTHER FORM 2 ML/HR]
     Route: 042

REACTIONS (1)
  - Transfusion-related acute lung injury [Unknown]
